FAERS Safety Report 6279097-2 (Version None)
Quarter: 2009Q3

REPORT INFORMATION
  Report Type: 
  Country: None (occurrence: None)
  Receive Date: 20090723
  Receipt Date: 20090714
  Transmission Date: 20100115
  Serious: Yes (Hospitalization)
  Sender: FDA-Public Use
  Company Number: AU-CELGENEUS-008-20785-09051634

PATIENT
  Sex: Male
  Weight: 107 kg

DRUGS (12)
  1. THALIDOMIDE [Suspect]
     Indication: MYELODYSPLASTIC SYNDROME
     Route: 048
     Dates: start: 20090402
  2. THALIDOMIDE [Suspect]
     Route: 048
     Dates: start: 20090518
  3. VIDAZA [Suspect]
     Indication: MYELODYSPLASTIC SYNDROME
     Route: 058
     Dates: start: 20090402
  4. VIDAZA [Suspect]
     Route: 058
     Dates: start: 20090518, end: 20090521
  5. NEUPOGEN [Concomitant]
     Indication: DRUG USE FOR UNKNOWN INDICATION
     Route: 065
     Dates: end: 20090310
  6. EXJADE [Concomitant]
     Indication: IRON OVERLOAD
     Route: 065
  7. AVAPRO [Concomitant]
     Indication: HYPERTENSION
     Dosage: 300/12.5
     Route: 065
  8. PARIET [Concomitant]
     Route: 065
  9. LACTULOSE [Concomitant]
     Indication: CONSTIPATION
     Route: 065
  10. NULYTELY [Concomitant]
     Indication: CONSTIPATION
     Route: 048
  11. COLOXYL [Concomitant]
     Indication: CONSTIPATION
     Route: 065
  12. SENNA [Concomitant]
     Indication: CONSTIPATION
     Route: 065

REACTIONS (3)
  - NEUTROPENIA [None]
  - RENAL IMPAIRMENT [None]
  - UROSEPSIS [None]
